FAERS Safety Report 8234609-4 (Version None)
Quarter: 2012Q1

REPORT INFORMATION
  Report Type: 
  Country: None (occurrence: None)
  Receive Date: 20120326
  Receipt Date: 20120312
  Transmission Date: 20120608
  Serious: Yes (Death, Hospitalization)
  Sender: FDA-Public Use
  Company Number: GB-ROCHE-GNE324469

PATIENT
  Sex: Male

DRUGS (1)
  1. LUCENTIS [Suspect]
     Indication: PRODUCT USED FOR UNKNOWN INDICATION
     Route: 050

REACTIONS (6)
  - URETERIC CANCER [None]
  - HAEMATURIA [None]
  - URETERIC OBSTRUCTION [None]
  - ANAEMIA [None]
  - DEATH [None]
  - RENAL IMPAIRMENT [None]
